FAERS Safety Report 8895120 (Version 1)
Quarter: 2012Q4

REPORT INFORMATION
  Report Type: 
  Country: US (occurrence: US)
  Receive Date: 20121107
  Receipt Date: 20121107
  Transmission Date: 20130627
  Serious: Yes (Hospitalization)
  Sender: FDA-Public Use
  Company Number: US-AMGEN-USASP2011056112

PATIENT
  Age: 57 Year
  Sex: Female
  Weight: 111 kg

DRUGS (1)
  1. ENBREL [Suspect]
     Indication: RHEUMATOID ARTHRITIS
     Dosage: 50 mg, qwk
     Dates: start: 20100302, end: 20110509

REACTIONS (8)
  - Pneumonia [Recovered/Resolved]
  - Therapeutic response decreased [Not Recovered/Not Resolved]
  - Wheezing [Unknown]
  - Productive cough [Unknown]
  - Sputum discoloured [Unknown]
  - General symptom [Recovered/Resolved]
  - Dyspnoea [Unknown]
  - Rheumatoid arthritis [Not Recovered/Not Resolved]
